FAERS Safety Report 7314520-3 (Version None)
Quarter: 2011Q1

REPORT INFORMATION
  Report Type: 
  Country: None (occurrence: None)
  Receive Date: 20110225
  Receipt Date: 20100921
  Transmission Date: 20110831
  Serious: No
  Sender: FDA-Public Use
  Company Number: US-MYLANLABS-2010S1017391

PATIENT
  Age: 63 Year
  Sex: Female

DRUGS (4)
  1. ESTROGENIC SUBSTANCE [Concomitant]
  2. SEROQUEL [Concomitant]
  3. MONOPRIL [Concomitant]
  4. AMNESTEEM [Suspect]
     Indication: KERATOSIS FOLLICULAR
     Route: 048
     Dates: end: 20100920

REACTIONS (2)
  - MOOD ALTERED [None]
  - FATIGUE [None]
